FAERS Safety Report 8289606-X (Version None)
Quarter: 2012Q2

REPORT INFORMATION
  Report Type: 
  Country: None (occurrence: None)
  Receive Date: 20120417
  Receipt Date: 20120406
  Transmission Date: 20120825
  Serious: Yes (Other)
  Sender: FDA-Public Use
  Company Number: US-CELGENEUS-163-21880-12040852

PATIENT
  Sex: Female

DRUGS (1)
  1. REVLIMID [Suspect]
     Indication: MULTIPLE MYELOMA
     Dosage: 15 MILLIGRAM
     Route: 048
     Dates: start: 20120201

REACTIONS (5)
  - VOMITING [None]
  - IMPAIRED HEALING [None]
  - THROAT TIGHTNESS [None]
  - HAEMORRHAGE [None]
  - PLASMACYTOMA [None]
